FAERS Safety Report 23459626 (Version 1)
Quarter: 2024Q1

REPORT INFORMATION
  Report Type: Spontaneous
  Country: US (occurrence: US)
  Receive Date: 20240131
  Receipt Date: 20240131
  Transmission Date: 20240410
  Serious: No
  Sender: FDA-Public Use
  Company Number: US-AUROBINDO-AUR-APL-2023-015045

PATIENT
  Age: 59 Year

DRUGS (1)
  1. LORAZEPAM [Suspect]
     Active Substance: LORAZEPAM
     Indication: Product used for unknown indication
     Dosage: 0.5 MILLIGRAM (1MG BROKEN IN HALF) ABOUT 1 1/2 YEARS NOW
     Route: 065

REACTIONS (4)
  - Feeling abnormal [Unknown]
  - Tremor [Unknown]
  - Drug ineffective [Unknown]
  - Product use complaint [Unknown]
